FAERS Safety Report 6113080-2 (Version None)
Quarter: 2009Q1

REPORT INFORMATION
  Report Type: 
  Country: None (occurrence: None)
  Receive Date: 20090312
  Receipt Date: 20090305
  Transmission Date: 20090719
  Serious: Yes (Hospitalization)
  Sender: FDA-Public Use
  Company Number: FR-ABBOTT-09P-056-0497982-00

PATIENT
  Sex: Male

DRUGS (6)
  1. DEPAKENE [Suspect]
     Indication: EPILEPSY
     Route: 048
     Dates: start: 20050101
  2. KALETRA [Suspect]
     Indication: HIV INFECTION
     Route: 048
  3. TENOFOVIR [Suspect]
     Indication: HIV INFECTION
     Route: 048
  4. DIDANOSINE [Suspect]
     Indication: HIV INFECTION
     Route: 048
     Dates: start: 20080801, end: 20081125
  5. CARBAMAZEPINE [Concomitant]
     Indication: EPILEPSY
     Route: 048
  6. EFAVIRENZ [Concomitant]
     Indication: DRUG USE FOR UNKNOWN INDICATION
     Route: 048

REACTIONS (10)
  - BLOOD LACTIC ACID INCREASED [None]
  - BLOOD PHOSPHORUS DECREASED [None]
  - GENERAL PHYSICAL HEALTH DETERIORATION [None]
  - LIPASE INCREASED [None]
  - MITOCHONDRIAL CYTOPATHY [None]
  - NEUROPATHY PERIPHERAL [None]
  - OVERDOSE [None]
  - PAIN IN EXTREMITY [None]
  - PROTEINURIA [None]
  - RENAL TUBULAR DISORDER [None]
